FAERS Safety Report 7523153-5 (Version None)
Quarter: 2011Q2

REPORT INFORMATION
  Report Type: 
  Country: None (occurrence: None)
  Receive Date: 20110525
  Receipt Date: 20110511
  Transmission Date: 20111010
  Serious: Yes (Hospitalization, Disabling)
  Sender: FDA-Public Use
  Company Number: TCI2011A02534

PATIENT
  Age: 70 Year
  Sex: Male

DRUGS (8)
  1. NOVOLIN R [Concomitant]
  2. AMLODIN (AMLODIPINE BEEILATE) [Concomitant]
  3. CANDESARTAN CILEXETIL [Concomitant]
  4. PREVPAC [Suspect]
     Indication: HELICOBACTER INFECTION
     Dosage: 1 CARD (0.5 CARD,2 IN 1 D) PER ORAL
     Route: 048
     Dates: start: 20101210, end: 20101216
  5. FAMOTIDINE [Suspect]
     Indication: DUODENAL ULCER
     Dosage: 20 MG (20 MG,1 IN 1 D), PER ORAL
     Route: 048
     Dates: start: 20101217, end: 20110209
  6. FLUITRAN (TRICHLORMETHIAZIDE) [Concomitant]
  7. METHYCOHAL (MECOHALAMIN) [Concomitant]
  8. FOLIC ACID [Concomitant]

REACTIONS (5)
  - RENAL FAILURE [None]
  - FLATULENCE [None]
  - ANTINEUTROPHIL CYTOPLASMIC ANTIBODY POSITIVE [None]
  - GLOMERULONEPHRITIS RAPIDLY PROGRESSIVE [None]
  - GLOMERULOSCLEROSIS [None]
